FAERS Safety Report 9114959 (Version 1)
Quarter: 2013Q1

REPORT INFORMATION
  Report Type: Spontaneous
  Country: ES (occurrence: ES)
  Receive Date: 20130208
  Receipt Date: 20130208
  Transmission Date: 20140127
  Serious: Yes (Hospitalization)
  Sender: FDA-Public Use
  Company Number: ES-ROXANE LABORATORIES, INC.-2013-RO-00193RO

PATIENT
  Age: 44 Year
  Sex: Female

DRUGS (6)
  1. FLUCONAZOLE [Suspect]
     Indication: VULVOVAGINAL CANDIDIASIS
     Dosage: 100 MG
  2. MYCOPHENOLATE MOFETIL [Suspect]
     Indication: LIVER TRANSPLANT
     Route: 048
  3. CYCLOSPORINE [Suspect]
     Indication: LIVER TRANSPLANT
     Dosage: 700 MG
     Route: 048
  4. LOPINAVIR/RITONAVIR [Suspect]
     Indication: ANTIRETROVIRAL THERAPY
  5. RALTEGRAVIR [Suspect]
     Indication: ANTIRETROVIRAL THERAPY
     Dosage: 800 MG
  6. LAMIVUDINA [Suspect]
     Indication: ANTIRETROVIRAL THERAPY
     Dosage: 300 MG

REACTIONS (2)
  - Toxicity to various agents [Recovered/Resolved]
  - Anxiety [Unknown]
